FAERS Safety Report 8164428-9 (Version None)
Quarter: 2012Q1

REPORT INFORMATION
  Report Type: 
  Country: None (occurrence: None)
  Receive Date: 20120224
  Receipt Date: 20120215
  Transmission Date: 20120608
  Serious: Yes (Hospitalization)
  Sender: FDA-Public Use
  Company Number: SR-B.I. PHARMACEUTICALS,INC./RIDGEFIELD-2012-EU-00942GD

PATIENT

DRUGS (1)
  1. NEVIRAPINE [Suspect]
     Indication: HIV INFECTION

REACTIONS (1)
  - NEPHROPATHY TOXIC [None]
